FAERS Safety Report 7542242-2 (Version None)
Quarter: 2011Q2

REPORT INFORMATION
  Report Type: 
  Country: None (occurrence: None)
  Receive Date: 20110613
  Receipt Date: 20110606
  Transmission Date: 20111010
  Serious: Yes (Other)
  Sender: FDA-Public Use
  Company Number: JP-PFIZER INC-2011122617

PATIENT
  Age: 52 Year
  Sex: Female

DRUGS (3)
  1. NEO-MEDROL [Suspect]
     Dosage: UNK
     Route: 047
     Dates: end: 20100401
  2. NEO-MEDROL [Suspect]
     Dosage: 3 TO 6 G/MONTH
     Route: 047
     Dates: start: 20100501
  3. BETAMETHASONE [Concomitant]
     Indication: ATOPY

REACTIONS (2)
  - OPTIC NERVE INJURY [None]
  - GLAUCOMA [None]
